FAERS Safety Report 24586114 (Version 1)
Quarter: 2024Q4

REPORT INFORMATION
  Report Type: Spontaneous
  Country: DE (occurrence: DE)
  Receive Date: 20241106
  Receipt Date: 20241106
  Transmission Date: 20250115
  Serious: Yes (Other)
  Sender: TEVA
  Company Number: None

PATIENT
  Age: 30 Year
  Sex: Female
  Weight: 58 kg

DRUGS (1)
  1. ISOTRETINOIN [Suspect]
     Active Substance: ISOTRETINOIN
     Indication: Pustule
     Dosage: 20MG
     Route: 048
     Dates: start: 20210823, end: 20211127

REACTIONS (27)
  - Suicidal ideation [Unknown]
  - Myalgia [Unknown]
  - Anaemia [Recovered/Resolved with Sequelae]
  - Herpes zoster [Recovered/Resolved with Sequelae]
  - Sjogren^s syndrome [Unknown]
  - Aphthous ulcer [Unknown]
  - Peripheral swelling [Unknown]
  - Petechiae [Recovered/Resolved with Sequelae]
  - Dizziness [Recovered/Resolved with Sequelae]
  - Haematuria [Recovered/Resolved with Sequelae]
  - Endometriosis [Unknown]
  - Photosensitivity reaction [Unknown]
  - Mood swings [Unknown]
  - Premature ageing [Recovered/Resolved with Sequelae]
  - Nausea [Recovered/Resolved with Sequelae]
  - Rheumatic disorder [Unknown]
  - Alopecia [Recovered/Resolved with Sequelae]
  - Arthralgia [Unknown]
  - Insomnia [Recovered/Resolved with Sequelae]
  - Raynaud^s phenomenon [Recovered/Resolved with Sequelae]
  - Disturbance in attention [Recovered/Resolved with Sequelae]
  - Fatigue [Unknown]
  - Depersonalisation/derealisation disorder [Unknown]
  - Headache [Recovered/Resolved with Sequelae]
  - Tinnitus [Recovered/Resolved with Sequelae]
  - Blood urine present [Unknown]
  - Arthritis [Recovered/Resolved with Sequelae]

NARRATIVE: CASE EVENT DATE: 20210101
